FAERS Safety Report 15607101 (Version 1)
Quarter: 2018Q4

REPORT INFORMATION
  Report Type: Spontaneous
  Country: US (occurrence: US)
  Receive Date: 20181112
  Receipt Date: 20181112
  Transmission Date: 20190205
  Serious: Yes (Other)
  Sender: FDA-Public Use
  Company Number: None

PATIENT

DRUGS (1)
  1. ONCASPAR [Suspect]
     Active Substance: PEGASPARGASE

REACTIONS (4)
  - Infusion related reaction [None]
  - Escherichia test positive [None]
  - Pyrexia [None]
  - Blood culture positive [None]

NARRATIVE: CASE EVENT DATE: 20181102
